FAERS Safety Report 15405595 (Version 1)
Quarter: 2018Q3

REPORT INFORMATION
  Report Type: Spontaneous
  Country: CA (occurrence: CA)
  Receive Date: 20180920
  Receipt Date: 20180920
  Transmission Date: 20181010
  Serious: Yes (Hospitalization, Other)
  Sender: FDA-Public Use
  Company Number: CA-APOTEX-2018AP020593

PATIENT
  Age: 73 Year
  Sex: Female

DRUGS (5)
  1. CYCLOSPORINE. [Suspect]
     Active Substance: CYCLOSPORINE
     Indication: NEUTROPHIL COUNT DECREASED
     Dosage: 300 MG, BID
     Route: 048
     Dates: start: 20170912, end: 20170914
  2. NEUPOGEN [Concomitant]
     Active Substance: FILGRASTIM
     Indication: NEUTROPHIL COUNT DECREASED
     Dosage: 330 MG, QD
     Route: 058
     Dates: start: 20170906, end: 20180913
  3. PREDNISONE. [Concomitant]
     Active Substance: PREDNISONE
     Dosage: 40 MG, QD
     Route: 048
     Dates: start: 20170914, end: 20170918
  4. PREDNISONE. [Concomitant]
     Active Substance: PREDNISONE
     Indication: NEUTROPHIL COUNT DECREASED
     Dosage: 70 MG, QD
     Route: 048
     Dates: start: 20170908, end: 20170914
  5. PEMBROLIZUMAB. [Suspect]
     Active Substance: PEMBROLIZUMAB
     Indication: LUNG ADENOCARCINOMA STAGE IV
     Dosage: EVERY TWO WEEK
     Route: 050
     Dates: start: 20170801, end: 20170818

REACTIONS (1)
  - Febrile neutropenia [Recovered/Resolved]

NARRATIVE: CASE EVENT DATE: 20170914
